FAERS Safety Report 4369972-8 (Version None)
Quarter: 2004Q2

REPORT INFORMATION
  Report Type: 
  Country: None (occurrence: None)
  Receive Date: 20040527
  Receipt Date: 20040517
  Transmission Date: 20050107
  Serious: No
  Sender: FDA-Public Use
  Company Number: 2004AP01562

PATIENT
  Age: 64 Year
  Sex: Male

DRUGS (3)
  1. CASODEX [Suspect]
     Indication: PROSTATE CANCER
     Dosage: 80 MG DAILY PO
     Route: 048
     Dates: start: 20030319, end: 20040213
  2. LEUPROLIDE ACETATE [Concomitant]
  3. ESPO [Concomitant]

REACTIONS (1)
  - PLATELET COUNT DECREASED [None]
